FAERS Safety Report 4518344-1 (Version None)
Quarter: 2004Q4

REPORT INFORMATION
  Report Type: 
  Country: None (occurrence: None)
  Receive Date: 20041202
  Receipt Date: 20041119
  Transmission Date: 20050328
  Serious: No
  Sender: FDA-Public Use
  Company Number: 210597

PATIENT
  Age: 68 Year
  Sex: Female

DRUGS (7)
  1. RITUXAN [Suspect]
     Indication: NON-HODGKIN'S LYMPHOMA
     Dosage: Q3W, INTRVENOUS
     Route: 042
     Dates: start: 20040701, end: 20040902
  2. CYCLOPHOSPHAMIDE [Concomitant]
  3. DOXORUBICIN (DOXORUBICIN, DOXORUBICIN HDYRICHLORIDE) [Concomitant]
  4. VINCRISTINE [Concomitant]
  5. PREDNISONE [Concomitant]
  6. SUDAFED 12 HOUR [Concomitant]
  7. MULTIVITAMIN (INGREDIENTS) (MULITIVITAMINS NOS) [Concomitant]

REACTIONS (1)
  - CATARACT OPERATION COMPLICATION [None]
